FAERS Safety Report 21482611 (Version 1)
Quarter: 2022Q4

REPORT INFORMATION
  Report Type: Spontaneous
  Country: US (occurrence: US)
  Receive Date: 20221020
  Receipt Date: 20221020
  Transmission Date: 20230113
  Serious: No
  Sender: FDA-Public Use
  Company Number: US-BAXTER-2022BAX021791

PATIENT
  Sex: Female

DRUGS (1)
  1. TRANSDERM SCOP [Suspect]
     Active Substance: SCOPOLAMINE
     Dosage: DOSAGE FORM: PATCH
     Route: 065

REACTIONS (3)
  - Throat irritation [Unknown]
  - Feeling abnormal [Unknown]
  - Erythema [Unknown]
